FAERS Safety Report 7795374-8 (Version None)
Quarter: 2011Q3

REPORT INFORMATION
  Report Type: 
  Country: None (occurrence: None)
  Receive Date: 20110930
  Receipt Date: 20110913
  Transmission Date: 20111222
  Serious: Yes (Hospitalization, Other)
  Sender: FDA-Public Use
  Company Number: JPI-P-017043

PATIENT
  Age: 60 Year
  Sex: Female

DRUGS (8)
  1. MELOXICAM [Concomitant]
  2. PROPRANOLOL [Concomitant]
  3. IRON [Concomitant]
  4. VITAMIN D [Concomitant]
  5. FLUOXETINE [Concomitant]
  6. XYREM [Suspect]
     Indication: NARCOLEPSY
     Dosage: 4.5 GM (2.25 GM, 2 IN 1 D, ORAL, ORAL, 4.5 GM FIRST DOSE/2.25 GM SECOND DOSE, ORAL
     Route: 048
     Dates: start: 20030917
  7. XYREM [Suspect]
     Indication: NARCOLEPSY
     Dosage: 4.5 GM (2.25 GM, 2 IN 1 D, ORAL, ORAL, 4.5 GM FIRST DOSE/2.25 GM SECOND DOSE, ORAL
     Route: 048
     Dates: start: 20110629
  8. CALCIUM CARBONATE [Concomitant]

REACTIONS (7)
  - NECK PAIN [None]
  - ROTATOR CUFF SYNDROME [None]
  - INTERVERTEBRAL DISC DEGENERATION [None]
  - CONDITION AGGRAVATED [None]
  - PARATHYROID TUMOUR [None]
  - ARTHRALGIA [None]
  - FALL [None]
